FAERS Safety Report 20552572 (Version 1)
Quarter: 2022Q1

REPORT INFORMATION
  Report Type: Spontaneous
  Country: IT (occurrence: IT)
  Receive Date: 20220304
  Receipt Date: 20220304
  Transmission Date: 20220423
  Serious: Yes (Other)
  Sender: FDA-Public Use
  Company Number: None

PATIENT
  Age: 42 Year
  Sex: Female
  Weight: 64 kg

DRUGS (1)
  1. DIENOGEST\ETHINYL ESTRADIOL [Suspect]
     Active Substance: DIENOGEST\ETHINYL ESTRADIOL
     Indication: Menstruation irregular
     Dosage: 1 DF, QD
     Route: 048
     Dates: start: 20180201, end: 20180701

REACTIONS (1)
  - Conjunctival haemorrhage [Recovered/Resolved]

NARRATIVE: CASE EVENT DATE: 20180401
